FAERS Safety Report 16217932 (Version 5)
Quarter: 2021Q2

REPORT INFORMATION
  Report Type: Report from Study
  Country: None (occurrence: ES)
  Receive Date: 20190419
  Receipt Date: 20210406
  Transmission Date: 20210716
  Serious: Yes (Hospitalization, Other)
  Sender: FDA-Public Use
  Company Number: ES-ABBVIE-19P-144-2742812-00

PATIENT
  Age: 45 Year
  Sex: Male
  Weight: 60 kg

DRUGS (8)
  1. HUMIRA [Suspect]
     Active Substance: ADALIMUMAB
     Indication: COLITIS ULCERATIVE
     Route: 058
     Dates: start: 20141029, end: 20160212
  2. HUMIRA [Suspect]
     Active Substance: ADALIMUMAB
     Route: 058
     Dates: start: 20160818, end: 20180702
  3. CODEINE PHOSPHATE HEMIHYDRATE [Concomitant]
     Active Substance: CODEINE PHOSPHATE
     Indication: COLITIS ULCERATIVE
     Route: 048
     Dates: start: 20160618
  4. CARBOXIMALTOSA IRON [Concomitant]
     Indication: ANAEMIA
     Route: 041
     Dates: start: 20130312
  5. PARACETAMOL [Concomitant]
     Active Substance: ACETAMINOPHEN
     Indication: ARTHRALGIA
     Route: 048
     Dates: start: 20180809
  6. OMEPRAZOLE. [Concomitant]
     Active Substance: OMEPRAZOLE
     Indication: COLITIS ULCERATIVE
     Route: 041
     Dates: start: 20180829
  7. VIVOMIXX [Concomitant]
     Active Substance: DIETARY SUPPLEMENT\PROBIOTICS
     Indication: PROBIOTIC THERAPY
     Dosage: 450 BILLION
     Route: 048
     Dates: start: 20160212
  8. HUMIRA [Suspect]
     Active Substance: ADALIMUMAB
     Route: 058
     Dates: start: 20160603, end: 20160803

REACTIONS (1)
  - Perineal fistula [Recovered/Resolved]

NARRATIVE: CASE EVENT DATE: 20190410
